FAERS Safety Report 9324676 (Version 1)
Quarter: 2013Q2

REPORT INFORMATION
  Report Type: Spontaneous
  Country: US (occurrence: US)
  Receive Date: 20130603
  Receipt Date: 20130603
  Transmission Date: 20140414
  Serious: No
  Sender: FDA-Public Use
  Company Number: US-009507513-1305USA017512

PATIENT
  Age: 27 Year
  Sex: Female

DRUGS (3)
  1. PEG-INTRON [Suspect]
     Indication: HEPATITIS C
     Dosage: REDIPEN
     Dates: start: 20130412
  2. REBETOL [Suspect]
     Indication: HEPATITIS C
     Dosage: UNK
     Dates: start: 20130412
  3. XANAX [Concomitant]
     Dosage: UNK

REACTIONS (5)
  - Injection site reaction [Unknown]
  - Irritability [Unknown]
  - Mood swings [Unknown]
  - Dysgeusia [Unknown]
  - Decreased appetite [Unknown]
